FAERS Safety Report 13922591 (Version 1)
Quarter: 2017Q3

REPORT INFORMATION
  Report Type: Spontaneous
  Country: IT (occurrence: IT)
  Receive Date: 20170830
  Receipt Date: 20170830
  Transmission Date: 20171127
  Serious: No
  Sender: FDA-Public Use
  Company Number: IT-ELI_LILLY_AND_COMPANY-IT201708009565

PATIENT
  Age: 48 Year
  Sex: Male

DRUGS (5)
  1. FLUTIFORMO [Concomitant]
  2. CIALIS [Suspect]
     Active Substance: TADALAFIL
     Indication: PROSTATITIS
     Dosage: UNK, 2/W
     Route: 065
     Dates: start: 201703
  3. CARDICOR [Concomitant]
     Active Substance: BISOPROLOL
  4. CIALIS [Suspect]
     Active Substance: TADALAFIL
     Dosage: UNK, ALTERNATE DAYS
     Route: 065
  5. ATORVASTATIN [Concomitant]
     Active Substance: ATORVASTATIN

REACTIONS (4)
  - Feeling hot [Unknown]
  - Headache [Recovering/Resolving]
  - Ocular hyperaemia [Unknown]
  - Off label use [Unknown]

NARRATIVE: CASE EVENT DATE: 201703
